FAERS Safety Report 5643607-6 (Version None)
Quarter: 2008Q1

REPORT INFORMATION
  Report Type: 
  Country: None (occurrence: None)
  Receive Date: 20080131
  Receipt Date: 20071226
  Transmission Date: 20080703
  Serious: Yes (Hospitalization)
  Sender: FDA-Public Use
  Company Number: 163-21880-07121376

PATIENT
  Age: 66 Year
  Sex: Male

DRUGS (15)
  1. REVLIMID [Suspect]
     Indication: PROSTATE CANCER
     Dosage: 25 MG, DAILY, DAYS 1-21 THEN 7DAYS OFF, ORAL
     Route: 048
     Dates: start: 20071116, end: 20071226
  2. KETOCONAZOLE [Suspect]
     Indication: PROSTATE CANCER
     Dosage: 400 MG, TID, ORAL
     Route: 048
  3. WARFARIN SODIUM [Concomitant]
  4. OXYCODONE HCL [Concomitant]
  5. VENLAFAXINE HCL [Concomitant]
  6. OXYCODONE  HCL/ ACETAMINOPHEN  (OXYCOCET) [Concomitant]
  7. PROCHLORPERAZINE MALEATE [Concomitant]
  8. HYDROCORISONE [Concomitant]
  9. CAPTOPRIL [Concomitant]
  10. DILTIAZEM [Concomitant]
  11. METOPROLOL SUCCINATE EXTENDED RELEASE [Concomitant]
  12. GLYBURIDE [Concomitant]
  13. SPOLIFENACIN [Concomitant]
  14. LEUPROLIDE ACETATE [Concomitant]
  15. METFORMIN HCL [Concomitant]

REACTIONS (7)
  - DEHYDRATION [None]
  - DYSARTHRIA [None]
  - FALL [None]
  - HYPOTENSION [None]
  - NAUSEA [None]
  - RENAL FAILURE ACUTE [None]
  - VOMITING [None]
